FAERS Safety Report 13424742 (Version 2)
Quarter: 2017Q2

REPORT INFORMATION
  Report Type: Spontaneous
  Country: US (occurrence: US)
  Receive Date: 20170410
  Receipt Date: 20170414
  Transmission Date: 20170830
  Serious: No
  Sender: FDA-Public Use
  Company Number: US-PFIZER INC-2017155664

PATIENT
  Sex: Male
  Weight: 64 kg

DRUGS (7)
  1. VIAGRA [Suspect]
     Active Substance: SILDENAFIL CITRATE
     Indication: ERECTILE DYSFUNCTION
     Dosage: 50 MG, UNK
  2. BEE POLLEN [Concomitant]
     Active Substance: BEE POLLEN
     Indication: ERECTILE DYSFUNCTION
     Dosage: 2 DF, 2X/DAY
  3. ATENOLOL. [Concomitant]
     Active Substance: ATENOLOL
     Indication: HYPERTENSION
     Dosage: 25 MG, 1X/DAY
     Dates: end: 20170404
  4. ASIAN GINSENG [Concomitant]
     Active Substance: ASIAN GINSENG
     Indication: ERECTILE DYSFUNCTION
     Dosage: 1 DF, 2X/DAY
  5. VIAGRA [Suspect]
     Active Substance: SILDENAFIL CITRATE
     Dosage: 100 MG, UNK
     Dates: start: 201608
  6. HAWTHORNE BERRIES [Concomitant]
     Indication: ERECTILE DYSFUNCTION
     Dosage: 2 DF, 2X/DAY
  7. MACA [Concomitant]
     Indication: ERECTILE DYSFUNCTION
     Dosage: 1 DF, 2X/DAY; 1 CAPSULE TWICE A DAY FOR 3-4 DAYS

REACTIONS (1)
  - Drug ineffective [Unknown]
